FAERS Safety Report 8973010 (Version 1)
Quarter: 2012Q4

REPORT INFORMATION
  Report Type: 
  Country: US (occurrence: US)
  Receive Date: 20121218
  Receipt Date: 20121218
  Transmission Date: 20130627
  Serious: No
  Sender: FDA-Public Use
  Company Number: US-BRISTOL-MYERS SQUIBB COMPANY-16967283

PATIENT
  Age: 23 Year
  Sex: Male
  Weight: 96.14 kg

DRUGS (5)
  1. ABILIFY [Suspect]
     Indication: AUTISM
     Dosage: Duration: more than 10 years. Drug stopped and resumed with reduced dose 2mg twice a day
  2. RILUZOLE [Concomitant]
  3. SERTRALINE [Concomitant]
  4. BUSPAR [Concomitant]
  5. DEPAKOTE ER [Concomitant]

REACTIONS (2)
  - Tardive dyskinesia [Unknown]
  - Aggression [Unknown]
